FAERS Safety Report 8869623 (Version 1)
Quarter: 2012Q4

REPORT INFORMATION
  Report Type: 
  Country: US (occurrence: US)
  Receive Date: 20121028
  Receipt Date: 20121028
  Transmission Date: 20130627
  Serious: No
  Sender: FDA-Public Use
  Company Number: US-BAYER-2012-112402

PATIENT
  Age: 72 Year
  Sex: Male
  Weight: 97.51 kg

DRUGS (4)
  1. ALEVE GELCAP [Suspect]
     Indication: ARTHRITIS
     Dosage: 2 DF, QD
     Dates: start: 1994
  2. DIABETES MEDICATION [Concomitant]
  3. ANTIHYPERTENSIVES [Concomitant]
  4. VITAMIN C [Concomitant]

REACTIONS (1)
  - Abdominal pain upper [Recovered/Resolved]
